FAERS Safety Report 23444084 (Version 2)
Quarter: 2024Q2

REPORT INFORMATION
  Report Type: Spontaneous
  Country: US (occurrence: US)
  Receive Date: 20240125
  Receipt Date: 20240417
  Transmission Date: 20240716
  Serious: No
  Sender: FDA-Public Use
  Company Number: US-SA-SAC20240118000763

PATIENT
  Age: 17 Year
  Sex: Female

DRUGS (1)
  1. DUPIXENT [Suspect]
     Active Substance: DUPILUMAB
     Indication: Eczema infantile
     Dosage: 300 MG QOW
     Route: 058
     Dates: start: 20231010

REACTIONS (4)
  - Dry skin [Unknown]
  - Pruritus [Not Recovered/Not Resolved]
  - Therapeutic product effect decreased [Unknown]
  - Eczema [Not Recovered/Not Resolved]
